FAERS Safety Report 17940956 (Version 5)
Quarter: 2024Q3

REPORT INFORMATION
  Report Type: Spontaneous
  Country: US (occurrence: US)
  Receive Date: 20200625
  Receipt Date: 20240904
  Transmission Date: 20241016
  Serious: No
  Sender: SANOFI AVENTIS
  Company Number: US-SA-2020SA148695

PATIENT
  Age: 58 Year
  Sex: Female

DRUGS (3)
  1. DUPIXENT [Suspect]
     Active Substance: DUPILUMAB
     Indication: Asthma
     Dosage: 300 MG, QOW
     Route: 058
     Dates: start: 201908
  2. DUPIXENT [Suspect]
     Active Substance: DUPILUMAB
     Dosage: 300 MG, FREQUENCY: OTHER
     Route: 058
     Dates: start: 202007
  3. DUPILUMAB [Suspect]
     Active Substance: DUPILUMAB
     Indication: Asthma
     Dosage: 300 MG, QOW
     Route: 058

REACTIONS (14)
  - Alopecia [Unknown]
  - Illness [Recovered/Resolved]
  - Asthma [Unknown]
  - Product dose omission issue [Unknown]
  - Stress [Unknown]
  - Depression [Unknown]
  - Pruritus [Unknown]
  - Urticaria [Unknown]
  - Dizziness [Unknown]
  - Rash [Unknown]
  - Hypoacusis [Unknown]
  - Pain [Unknown]
  - Burning sensation [Unknown]
  - Paraesthesia [Not Recovered/Not Resolved]

NARRATIVE: CASE EVENT DATE: 20190101
